FAERS Safety Report 13140402 (Version 1)
Quarter: 2017Q1

REPORT INFORMATION
  Report Type: Spontaneous
  Country: US (occurrence: US)
  Receive Date: 20170123
  Receipt Date: 20170123
  Transmission Date: 20170428
  Serious: No
  Sender: FDA-Public Use
  Company Number: US-UNITED THERAPEUTICS-UNT-2016-016872

PATIENT
  Age: 28 Year
  Sex: Female
  Weight: 58.96 kg

DRUGS (2)
  1. ORENITRAM [Suspect]
     Active Substance: TREPROSTINIL
     Indication: PULMONARY HYPERTENSION
     Dosage: 5 MG, Q8H
     Route: 048
     Dates: start: 20150505
  2. OPSUMIT [Concomitant]
     Active Substance: MACITENTAN
     Indication: PRODUCT USED FOR UNKNOWN INDICATION

REACTIONS (3)
  - Headache [Unknown]
  - Flushing [Unknown]
  - Product use issue [Unknown]

NARRATIVE: CASE EVENT DATE: 201610
